FAERS Safety Report 17162131 (Version 1)
Quarter: 2019Q4

REPORT INFORMATION
  Report Type: Spontaneous
  Country: US (occurrence: US)
  Receive Date: 20191122
  Receipt Date: 20191122
  Transmission Date: 20200122
  Serious: Yes (Hospitalization)
  Sender: FDA-Public Use
  Company Number: None

PATIENT
  Sex: Female
  Weight: 94.5 kg

DRUGS (1)
  1. CISPLATIN. [Suspect]
     Active Substance: CISPLATIN

REACTIONS (11)
  - Pyelonephritis [None]
  - Anaemia [None]
  - Pyrexia [None]
  - Nausea [None]
  - Escherichia test positive [None]
  - Culture urine positive [None]
  - Neutrophil count decreased [None]
  - Tachycardia [None]
  - Sepsis [None]
  - Thrombocytopenia [None]
  - Blood pressure decreased [None]

NARRATIVE: CASE EVENT DATE: 20191014
